FAERS Safety Report 24104238 (Version 1)
Quarter: 2024Q3

REPORT INFORMATION
  Report Type: Other
  Country: US (occurrence: US)
  Receive Date: 20240717
  Receipt Date: 20240717
  Transmission Date: 20241017
  Serious: Yes (Hospitalization, Other)
  Sender: CAPLIN POINT LABORATORIES
  Company Number: US-Caplin Steriles Limited-2159206

PATIENT
  Age: 32 Year
  Sex: Female

DRUGS (2)
  1. ARGATROBAN [Suspect]
     Active Substance: ARGATROBAN
     Indication: Heparin-induced thrombocytopenia
     Route: 041
  2. Unfractionated Heparin for anticoagulation [Concomitant]
     Route: 041

REACTIONS (1)
  - Anaphylactic reaction [Recovered/Resolved]
